FAERS Safety Report 6663179-7 (Version None)
Quarter: 2010Q2

REPORT INFORMATION
  Report Type: 
  Country: None (occurrence: None)
  Receive Date: 20100401
  Receipt Date: 20100323
  Transmission Date: 20101027
  Serious: Yes (Other)
  Sender: FDA-Public Use
  Company Number: CA-JNJFOC-20100306974

PATIENT
  Sex: Female
  Weight: 63 kg

DRUGS (3)
  1. REMICADE [Suspect]
     Indication: COLITIS ULCERATIVE
     Dosage: FOR 3-4 YEARS
     Route: 042
  2. REMICADE [Suspect]
     Route: 042
  3. BIRTH CONTROL PILLS [Concomitant]

REACTIONS (2)
  - CHEST PAIN [None]
  - HAEMOPTYSIS [None]
